FAERS Safety Report 10150021 (Version 1)
Quarter: 2014Q2

REPORT INFORMATION
  Report Type: Spontaneous
  Country: US (occurrence: None)
  Receive Date: 20140501
  Receipt Date: 20140501
  Transmission Date: 20141212
  Serious: No
  Sender: FDA-Public Use
  Company Number: None

PATIENT
  Age: 49 Year
  Sex: Female

DRUGS (7)
  1. LISINOPRIL [Suspect]
     Indication: HYPERTENSION
     Route: 048
     Dates: end: 20130930
  2. TACROLIMUS [Concomitant]
  3. AZATHIOPRINE [Concomitant]
  4. PRAVASTATIN [Concomitant]
  5. HYDROXYCHLOROGUINE [Concomitant]
  6. PREDNISONE [Concomitant]
  7. RANITIDINE [Concomitant]

REACTIONS (3)
  - Paraesthesia [None]
  - Hyperkalaemia [None]
  - Electrocardiogram T wave peaked [None]
